FAERS Safety Report 11424569 (Version 2)
Quarter: 2015Q3

REPORT INFORMATION
  Report Type: Spontaneous
  Country: FR (occurrence: FR)
  Receive Date: 20150827
  Receipt Date: 20150901
  Transmission Date: 20151125
  Serious: Yes (Life-Threatening, Other)
  Sender: FDA-Public Use
  Company Number: FR-GLAXOSMITHKLINE-FR2015GSK123032

PATIENT
  Age: 59 Year
  Sex: Female

DRUGS (4)
  1. ETOPOPHOS [Suspect]
     Active Substance: ETOPOSIDE PHOSPHATE
     Indication: PRODUCT USED FOR UNKNOWN INDICATION
     Dosage: 200 MG/M2, 1D
     Route: 042
     Dates: start: 20150716, end: 20150719
  2. ALKERAN [Suspect]
     Active Substance: MELPHALAN
     Indication: PRODUCT USED FOR UNKNOWN INDICATION
     Dosage: 140 MG/M2, 1D
     Route: 042
     Dates: start: 20150720, end: 20150720
  3. LEVACT (BENDAMUSTINE HYDROCHLORIDE) [Suspect]
     Active Substance: BENDAMUSTINE HYDROCHLORIDE
     Indication: PRODUCT USED FOR UNKNOWN INDICATION
     Dosage: 200 MG/M2, 1D
     Route: 042
     Dates: start: 20150714, end: 20150715
  4. CYTARABINE. [Suspect]
     Active Substance: CYTARABINE
     Indication: PRODUCT USED FOR UNKNOWN INDICATION
     Dosage: UNK
     Route: 042
     Dates: start: 201507, end: 201507

REACTIONS (9)
  - Hepatitis fulminant [Recovered/Resolved]
  - Encephalopathy [Recovered/Resolved]
  - Ascites [Unknown]
  - Weight increased [Unknown]
  - Venoocclusive disease [Recovered/Resolved]
  - Prothrombin time shortened [Recovering/Resolving]
  - Hyperbilirubinaemia [Recovered/Resolved]
  - Thrombocytopenia [Not Recovered/Not Resolved]
  - Hepatocellular injury [Recovering/Resolving]

NARRATIVE: CASE EVENT DATE: 20150723
